FAERS Safety Report 24331615 (Version 2)
Quarter: 2024Q4

REPORT INFORMATION
  Report Type: Spontaneous
  Country: FR (occurrence: FR)
  Receive Date: 20240918
  Receipt Date: 20241107
  Transmission Date: 20250115
  Serious: Yes (Other)
  Sender: RANBAXY
  Company Number: FR-SUN PHARMACEUTICALS INDUSTRIES LTD.-2024RR-466696

PATIENT
  Sex: Female

DRUGS (3)
  1. OLANZAPINE [Suspect]
     Active Substance: OLANZAPINE
     Indication: Mood swings
     Dosage: 5 MILLIGRAM, DAILY
     Route: 065
  2. CANDESARTAN [Concomitant]
     Active Substance: CANDESARTAN
     Indication: Hypertension
     Dosage: 8 MILLIGRAM, UNK
     Route: 065
  3. CANDESARTAN [Concomitant]
     Active Substance: CANDESARTAN
     Dosage: 4 MILLIGRAM, UNK
     Route: 065

REACTIONS (5)
  - Weight increased [Unknown]
  - Hunger [Unknown]
  - Muscular weakness [Unknown]
  - Fatigue [Unknown]
  - Tachycardia [Unknown]
